FAERS Safety Report 11662292 (Version 3)
Quarter: 2016Q1

REPORT INFORMATION
  Report Type: Report from Study
  Country: CO (occurrence: CO)
  Receive Date: 20151027
  Receipt Date: 20160101
  Transmission Date: 20160525
  Serious: Yes (Death)
  Sender: FDA-Public Use
  Company Number: CO-ROCHE-1651089

PATIENT
  Age: 51 Year
  Sex: Male

DRUGS (1)
  1. RITUXIMAB [Suspect]
     Active Substance: RITUXIMAB
     Indication: NON-HODGKIN^S LYMPHOMA
     Route: 042
     Dates: start: 20150803

REACTIONS (3)
  - Diarrhoea [Unknown]
  - Asthenia [Unknown]
  - Weight decreased [Fatal]

NARRATIVE: CASE EVENT DATE: 20151210
